FAERS Safety Report 8220417-7 (Version None)
Quarter: 2012Q1

REPORT INFORMATION
  Report Type: 
  Country: None (occurrence: None)
  Receive Date: 20120316
  Receipt Date: 20120306
  Transmission Date: 20120608
  Serious: Yes (Life-Threatening, Hospitalization, Disabling, Other)
  Sender: FDA-Public Use
  Company Number: ACO_29479_2012

PATIENT
  Age: 57 Year
  Sex: Female

DRUGS (8)
  1. EFFEXOR [Concomitant]
  2. SIMVASTATIN [Concomitant]
  3. LISINOPRIL [Concomitant]
  4. CLONAZEPAM [Concomitant]
  5. ALENDRONATE SODIUM [Concomitant]
  6. AMANTADINE HCL [Concomitant]
  7. PROZAC [Concomitant]
  8. AMPYRA [Suspect]
     Dosage: 10 MG, BID, ORAL
     Route: 048
     Dates: start: 20100701, end: 20120103

REACTIONS (22)
  - EJECTION FRACTION DECREASED [None]
  - PETIT MAL EPILEPSY [None]
  - ENCEPHALOPATHY [None]
  - URINARY TRACT INFECTION [None]
  - CARDIAC FAILURE CONGESTIVE [None]
  - PLEURAL EFFUSION [None]
  - PSYCHOTIC DISORDER [None]
  - TOXIC ENCEPHALOPATHY [None]
  - HALLUCINATION, VISUAL [None]
  - PULMONARY OEDEMA [None]
  - FALL [None]
  - HEAD INJURY [None]
  - MEMORY IMPAIRMENT [None]
  - RESPIRATORY DISTRESS [None]
  - RENAL FAILURE ACUTE [None]
  - DELIRIUM [None]
  - DYSPHAGIA [None]
  - ANXIETY [None]
  - HYPOTENSION [None]
  - BUNDLE BRANCH BLOCK LEFT [None]
  - CONFUSIONAL STATE [None]
  - ASPIRATION [None]
